FAERS Safety Report 18786138 (Version 3)
Quarter: 2021Q1

REPORT INFORMATION
  Report Type: Report from Study
  Country: CA (occurrence: CA)
  Receive Date: 20210125
  Receipt Date: 20210202
  Transmission Date: 20210419
  Serious: Yes (Hospitalization, Other)
  Sender: FDA-Public Use
  Company Number: CA-HLS-202106929

PATIENT
  Age: 54 Year
  Sex: Female

DRUGS (1)
  1. CLOZARIL [Suspect]
     Active Substance: CLOZAPINE
     Indication: PRODUCT USED FOR UNKNOWN INDICATION
     Dosage: UNKNOWN
     Route: 048
     Dates: start: 20150528, end: 20210118

REACTIONS (4)
  - Lower limb fracture [Unknown]
  - Neutropenia [Not Recovered/Not Resolved]
  - Infection [Unknown]
  - White blood cell count [Not Recovered/Not Resolved]

NARRATIVE: CASE EVENT DATE: 20200119
